FAERS Safety Report 9146370 (Version 1)
Quarter: 2013Q1

REPORT INFORMATION
  Report Type: Spontaneous
  Country: US (occurrence: None)
  Receive Date: 20130219
  Receipt Date: 20130219
  Transmission Date: 20140127
  Serious: Yes (Death)
  Sender: FDA-Public Use
  Company Number: 2013-00273

PATIENT
  Age: 36 Year
  Sex: Male

DRUGS (6)
  1. TRAMADOL [Suspect]
     Indication: PRODUCT USED FOR UNKNOWN INDICATION
  2. QUETIAPINE (UNKNOWN) [Suspect]
     Indication: PRODUCT USED FOR UNKNOWN INDICATION
  3. RISPERIDONE (RISPERIDONE) [Suspect]
  4. ALPRAZOLAM [Suspect]
  5. HYDROMORPHONE [Suspect]
  6. MORPHINE [Suspect]

REACTIONS (1)
  - Death [None]
